FAERS Safety Report 10621948 (Version 1)
Quarter: 2014Q4

REPORT INFORMATION
  Report Type: Spontaneous
  Country: PK (occurrence: None)
  Receive Date: 20141201
  Receipt Date: 20141201
  Transmission Date: 20150529
  Serious: Yes (Other)
  Sender: FDA-Public Use
  Company Number: None

PATIENT
  Age: 36 Year
  Sex: Male
  Weight: 84 kg

DRUGS (1)
  1. PROPECIA [Suspect]
     Active Substance: FINASTERIDE
     Dosage: TAKEN  BY MOUTH
     Route: 048

REACTIONS (3)
  - Pruritus genital [None]
  - Penile pain [None]
  - Genital discomfort [None]

NARRATIVE: CASE EVENT DATE: 20141127
